FAERS Safety Report 21986678 (Version 1)
Quarter: 2023Q1

REPORT INFORMATION
  Report Type: Spontaneous
  Country: CH (occurrence: CH)
  Receive Date: 20230213
  Receipt Date: 20230213
  Transmission Date: 20230418
  Serious: Yes (Other)
  Sender: FDA-Public Use
  Company Number: None

PATIENT
  Age: 34 Year
  Sex: Female

DRUGS (2)
  1. AJOVY [Suspect]
     Active Substance: FREMANEZUMAB-VFRM
     Indication: Migraine
     Dosage: 225 MG/1.5 ML
     Route: 058
     Dates: start: 202202, end: 202212
  2. RIBOFLAVINUM [Concomitant]
     Indication: Product used for unknown indication
     Dosage: 2 DOSAGE FORMS DAILY; UNKNOWN NAME OF THE SPECIALTY
     Route: 048

REACTIONS (2)
  - Hyperprolactinaemia [Unknown]
  - Rash [Unknown]

NARRATIVE: CASE EVENT DATE: 20221101
